FAERS Safety Report 6751256-1 (Version None)
Quarter: 2010Q2

REPORT INFORMATION
  Report Type: 
  Country: None (occurrence: None)
  Receive Date: 20100602
  Receipt Date: 20100525
  Transmission Date: 20101027
  Serious: Yes (Other)
  Sender: FDA-Public Use
  Company Number: CHPA2010CA09248

PATIENT
  Age: 66 Year
  Sex: Female

DRUGS (2)
  1. TRANSDERM VOYAGER [Suspect]
     Indication: NAUSEA
     Dosage: 1 DF, Q72H
     Route: 062
  2. MORPHINE [Suspect]
     Indication: BREAST CANCER
     Dosage: 2.5MG/HR

REACTIONS (1)
  - DEPRESSED LEVEL OF CONSCIOUSNESS [None]
